FAERS Safety Report 6146934-1 (Version None)
Quarter: 2009Q2

REPORT INFORMATION
  Report Type: 
  Country: None (occurrence: None)
  Receive Date: 20090407
  Receipt Date: 20090403
  Transmission Date: 20091009
  Serious: No
  Sender: FDA-Public Use
  Company Number: US-B.I. PHARMACEUTICALS,INC./RIDGEFIELD-2008-BP-06016BP

PATIENT
  Sex: Male

DRUGS (5)
  1. ZANTAC 150 [Suspect]
     Indication: HYPERCHLORHYDRIA
     Dosage: 150MG
     Route: 048
     Dates: start: 20080316
  2. ZANTAC 150 [Suspect]
     Indication: DYSPEPSIA
     Dosage: 300MG
     Route: 048
     Dates: end: 20080412
  3. ZANTAC 150 [Suspect]
     Dosage: 150MG
     Route: 048
     Dates: start: 20090316, end: 20090401
  4. SYNTHROID [Concomitant]
     Indication: HYPOTHYROIDISM
  5. EYE GTTS FOR GLAUCOMA [Concomitant]
     Indication: GLAUCOMA
     Route: 061

REACTIONS (1)
  - DRUG INEFFECTIVE [None]
